APPROVED DRUG PRODUCT: HEPZATO
Active Ingredient: MELPHALAN HYDROCHLORIDE
Strength: EQ 50MG BASE/VIAL
Dosage Form/Route: POWDER;INTRA-ARTERIAL
Application: N201848 | Product #001
Applicant: DELCATH SYSTEMS INC
Approved: Aug 14, 2023 | RLD: Yes | RS: Yes | Type: RX

PATENTS:
Patent 11633528 | Expires: Nov 7, 2032
Patent 10569004 | Expires: Nov 7, 2032
Patent 10569004 | Expires: Nov 7, 2032
Patent 11833286 | Expires: Dec 30, 2032
Patent 10369264 | Expires: Nov 7, 2032
Patent 10098997 | Expires: Nov 7, 2032
Patent 11083831 | Expires: Dec 30, 2032
Patent 10195334 | Expires: Jan 16, 2033
Patent 11241522 | Expires: Nov 7, 2032
Patent 9314561 | Expires: Feb 7, 2034
Patent 9707331 | Expires: Sep 17, 2034

EXCLUSIVITY:
Code: NP | Date: Aug 14, 2026
Code: ODE-438 | Date: Aug 14, 2030